FAERS Safety Report 24457915 (Version 1)
Quarter: 2024Q4

REPORT INFORMATION
  Report Type: Spontaneous
  Country: CN (occurrence: CN)
  Receive Date: 20241018
  Receipt Date: 20241018
  Transmission Date: 20250115
  Serious: No
  Sender: ROCHE
  Company Number: CN-BoehringerIngelheim-2023-BI-266991

PATIENT
  Age: 86 Year
  Sex: Female
  Weight: 60.0 kg

DRUGS (1)
  1. ALTEPLASE [Suspect]
     Active Substance: ALTEPLASE
     Indication: Thrombolysis
     Dosage: MOST RECENT DOSE RECEIVED ON 12/OCT/2023
     Route: 042
     Dates: start: 20231012

REACTIONS (2)
  - Gingival bleeding [Recovered/Resolved]
  - Off label use [Unknown]

NARRATIVE: CASE EVENT DATE: 20231012
